FAERS Safety Report 8189889-0 (Version None)
Quarter: 2012Q1

REPORT INFORMATION
  Report Type: 
  Country: None (occurrence: None)
  Receive Date: 20120307
  Receipt Date: 20120229
  Transmission Date: 20120608
  Serious: Yes (Other)
  Sender: FDA-Public Use
  Company Number: MY-JNJFOC-20120300820

PATIENT
  Age: 48 Year
  Sex: Female

DRUGS (2)
  1. DOXORUBICIN HYDROCHLORIDE [Suspect]
     Indication: OVARIAN CANCER RECURRENT
     Route: 042
  2. CARBOPLATIN [Concomitant]
     Route: 065

REACTIONS (2)
  - EYE PAIN [None]
  - VISION BLURRED [None]
